FAERS Safety Report 5869342-7 (Version None)
Quarter: 2008Q3

REPORT INFORMATION
  Report Type: 
  Country: None (occurrence: None)
  Receive Date: 20080828
  Receipt Date: 20080809
  Transmission Date: 20090109
  Serious: Yes (Other)
  Sender: FDA-Public Use
  Company Number: CHPA2008US07627

PATIENT
  Age: 42 Year
  Sex: Male
  Weight: 124.7 kg

DRUGS (2)
  1. DESENEX [Suspect]
     Indication: TINEA PEDIS
     Dosage: QD, TOPICAL
     Route: 061
     Dates: start: 20080428, end: 20080428
  2. LISINORPIL (LISINOPRIL) [Concomitant]

REACTIONS (7)
  - ACTIVITIES OF DAILY LIVING IMPAIRED [None]
  - APPLICATION SITE BURN [None]
  - APPLICATION SITE SCAB [None]
  - APPLICATION SITE VESICLES [None]
  - BURNS SECOND DEGREE [None]
  - PAIN IN EXTREMITY [None]
  - SCAR [None]
